FAERS Safety Report 16311479 (Version 1)
Quarter: 2019Q2

REPORT INFORMATION
  Report Type: Spontaneous
  Country: DE (occurrence: DE)
  Receive Date: 20190514
  Receipt Date: 20190514
  Transmission Date: 20190711
  Serious: Yes (Other)
  Sender: FDA-Public Use
  Company Number: DE-ALLERGAN-1920035US

PATIENT
  Sex: Female

DRUGS (3)
  1. GANFORT [Suspect]
     Active Substance: BIMATOPROST\TIMOLOL
     Indication: PRODUCT USED FOR UNKNOWN INDICATION
     Dosage: ACTUAL: 1/12 MILLILITRE
     Route: 047
  2. CLONID-OPHTAL [Concomitant]
     Active Substance: CLONIDINE HYDROCHLORIDE
     Dosage: ACTUAL: 1/12 MILLILITRE
     Route: 047
  3. ARTELAC EDO [Concomitant]
     Dosage: ACTUAL: 1/12 MILLILITRE
     Route: 047

REACTIONS (8)
  - Growth of eyelashes [Not Recovered/Not Resolved]
  - Eye infection bacterial [Recovered/Resolved]
  - Eyelash thickening [Not Recovered/Not Resolved]
  - Ocular hyperaemia [Not Recovered/Not Resolved]
  - Blepharitis [Not Recovered/Not Resolved]
  - Adenoviral conjunctivitis [Recovered/Resolved]
  - Eye irritation [Not Recovered/Not Resolved]
  - Eyelash changes [Not Recovered/Not Resolved]
